FAERS Safety Report 6027648-5 (Version None)
Quarter: 2009Q1

REPORT INFORMATION
  Report Type: 
  Country: None (occurrence: None)
  Receive Date: 20090105
  Receipt Date: 20080711
  Transmission Date: 20090719
  Serious: No
  Sender: FDA-Public Use
  Company Number: US-BAYER-200813059BCC

PATIENT
  Age: 83 Year
  Sex: Female
  Weight: 48 kg

DRUGS (5)
  1. ALEVE (CAPLET) [Suspect]
     Indication: ARTHRALGIA
     Dosage: TOTAL DAILY DOSE: 440 MG  UNIT DOSE: 220 MG
     Route: 048
     Dates: start: 20060101
  2. DYAZIDE [Concomitant]
  3. K-DUR [Concomitant]
  4. ACTONEL [Concomitant]
  5. METHOTREXATE [Concomitant]

REACTIONS (1)
  - ABDOMINAL PAIN UPPER [None]
